FAERS Safety Report 9227076 (Version 1)
Quarter: 2013Q2

REPORT INFORMATION
  Report Type: Report from Study
  Country: CA (occurrence: CA)
  Receive Date: 20130412
  Receipt Date: 20130412
  Transmission Date: 20140414
  Serious: Yes (Hospitalization)
  Sender: FDA-Public Use
  Company Number: CA-JNJFOC-20130401864

PATIENT
  Age: 14 Year
  Sex: Female
  Weight: 42.64 kg

DRUGS (7)
  1. REMICADE [Suspect]
     Indication: CROHN^S DISEASE
     Route: 042
  2. REMICADE [Suspect]
     Indication: CROHN^S DISEASE
     Dosage: ALSO REPORTED AS 5MG/KG
     Route: 042
     Dates: start: 20130220
  3. PREDNISONE [Concomitant]
     Route: 065
  4. VITAMIN [Concomitant]
     Route: 065
  5. IRON [Concomitant]
     Route: 065
  6. ASACOL [Concomitant]
     Route: 065
  7. CALCIUM [Concomitant]
     Route: 065

REACTIONS (1)
  - Crohn^s disease [Unknown]
